FAERS Safety Report 5721468-4 (Version None)
Quarter: 2008Q2

REPORT INFORMATION
  Report Type: 
  Country: None (occurrence: None)
  Receive Date: 20080424
  Receipt Date: 20080421
  Transmission Date: 20081010
  Serious: Yes (Other)
  Sender: FDA-Public Use
  Company Number: THQ2008AA00694

PATIENT
  Age: 30 Year
  Sex: Female

DRUGS (2)
  1. LEUPROLIDE ACETATE [Suspect]
     Indication: ENDOMETRIOSIS
     Dosage: 3.75 MG (3.75 MG, 1 IN 1 M) SUBCUTANEOUS
     Route: 058
     Dates: start: 20080101, end: 20080301
  2. DANAZOLE (DANAZOL) [Concomitant]

REACTIONS (1)
  - DIPLOPIA [None]
